FAERS Safety Report 20049811 (Version 1)
Quarter: 2021Q4

REPORT INFORMATION
  Report Type: Spontaneous
  Country: NL (occurrence: NL)
  Receive Date: 20211109
  Receipt Date: 20211109
  Transmission Date: 20220303
  Serious: Yes (Other)
  Sender: FDA-Public Use
  Company Number: None

PATIENT
  Sex: Male
  Weight: 72 kg

DRUGS (3)
  1. NAPROXEN [Suspect]
     Active Substance: NAPROXEN
     Indication: Arthralgia
     Dosage: 1000 MILLIGRAM DAILY;
     Dates: start: 20210916, end: 20210918
  2. SALBUTAMOL / Brand name not specified [Concomitant]
     Dosage: AEROSOL, 100 MCG/DOSE (MICROGRAMS PER DOSE),THERAPY START DATE :ASKU,THERAPY END DATE :ASKU
  3. OMEPRAZOLE [Concomitant]
     Active Substance: OMEPRAZOLE
     Dosage: UNKNOWN,THERAPY START DATE :ASKU,THERAPY END DATE :ASKU

REACTIONS (1)
  - Cutaneous vasculitis [Unknown]
